FAERS Safety Report 8234655 (Version 2)
Quarter: 2014Q1

REPORT INFORMATION
  Report Type: Spontaneous
  Country: US (occurrence: US)
  Receive Date: 20111108
  Receipt Date: 20140107
  Transmission Date: 20141002
  Serious: No
  Sender: FDA-Public Use
  Company Number: US-BIOGENIDEC-2011BI041426

PATIENT
  Age: 57 Year
  Sex: Female

DRUGS (2)
  1. AVONEX [Suspect]
     Indication: MULTIPLE SCLEROSIS
     Route: 030
     Dates: start: 19970901, end: 20070808
  2. AVONEX [Suspect]
     Indication: MULTIPLE SCLEROSIS
     Dates: start: 20071128

REACTIONS (6)
  - Body temperature [Not Recovered/Not Resolved]
  - Hypoaesthesia [Not Recovered/Not Resolved]
  - Influenza like illness [Recovered/Resolved]
  - Chills [Not Recovered/Not Resolved]
  - Injection site pain [Recovered/Resolved]
  - Hypersensitivity [Recovered/Resolved]
